FAERS Safety Report 7888040-1 (Version None)
Quarter: 2011Q4

REPORT INFORMATION
  Report Type: 
  Country: None (occurrence: None)
  Receive Date: 20111103
  Receipt Date: 20111028
  Transmission Date: 20120403
  Serious: Yes (Hospitalization, Other)
  Sender: FDA-Public Use
  Company Number: KR-JNJFOC-20110612185

PATIENT
  Age: 61 Year
  Sex: Female
  Weight: 43 kg

DRUGS (19)
  1. LEVOFLOXACIN [Suspect]
     Indication: TUBERCULOSIS
     Route: 042
     Dates: start: 20110120, end: 20110322
  2. ISONIAZID [Suspect]
     Route: 065
     Dates: start: 20110120
  3. CYCLOSERINE [Suspect]
     Route: 065
     Dates: start: 20110411, end: 20110412
  4. CONCOR [Concomitant]
     Indication: PRODUCT USED FOR UNKNOWN INDICATION
     Route: 065
     Dates: start: 20101018
  5. LEVOFLOXACIN [Suspect]
     Route: 042
     Dates: start: 20110411, end: 20110412
  6. RIFAMPIN [Suspect]
     Indication: TUBERCULOSIS
     Route: 065
     Dates: start: 20110120, end: 20110322
  7. ISONIAZID [Suspect]
     Indication: TUBERCULOSIS
     Route: 065
     Dates: start: 20110428
  8. ISONIAZID [Suspect]
     Route: 065
     Dates: start: 20110418, end: 20110419
  9. CYCLOSERINE [Suspect]
     Indication: TUBERCULOSIS
     Route: 065
     Dates: start: 20110513
  10. STREPTOMYCIN [Suspect]
     Indication: TUBERCULOSIS
     Route: 030
     Dates: start: 20110411, end: 20110412
  11. PYRIDOXINE HCL [Suspect]
     Indication: TUBERCULOSIS
     Route: 065
     Dates: start: 20110329
  12. ETHAMBUTOL HYDROCHLORIDE [Suspect]
     Route: 065
     Dates: start: 20110120, end: 20110322
  13. PROTHIONAMIDE [Concomitant]
     Indication: TUBERCULOSIS
     Route: 065
     Dates: start: 20110511
  14. STREPTOMYCIN [Suspect]
     Route: 030
     Dates: start: 20110120, end: 20110322
  15. STREPTOMYCIN [Suspect]
     Route: 030
     Dates: start: 20110509, end: 20110509
  16. ETHAMBUTOL HYDROCHLORIDE [Suspect]
     Indication: TUBERCULOSIS
     Route: 065
     Dates: start: 20110411, end: 20110412
  17. PYRAZINAMIDE [Suspect]
     Indication: TUBERCULOSIS
     Route: 065
     Dates: start: 20110120
  18. AMIKACIN [Suspect]
     Indication: TUBERCULOSIS
     Route: 042
  19. OMEPRAZOLE [Concomitant]
     Indication: PRODUCT USED FOR UNKNOWN INDICATION
     Route: 065
     Dates: start: 20101213

REACTIONS (2)
  - HEPATOTOXICITY [None]
  - DRUG RASH WITH EOSINOPHILIA AND SYSTEMIC SYMPTOMS [None]
